FAERS Safety Report 4562041-3 (Version None)
Quarter: 2005Q1

REPORT INFORMATION
  Report Type: 
  Country: None (occurrence: None)
  Receive Date: 20050125
  Receipt Date: 20050117
  Transmission Date: 20050727
  Serious: Yes (Hospitalization, Disabling)
  Sender: FDA-Public Use
  Company Number: 002#4#2005-00027

PATIENT
  Sex: Female

DRUGS (1)
  1. PPA/CPM-75/8MG(OTC)  (PHENYLPROPANOLAMINE HCL, CHLORPHENIRAMINE MALEAT [Suspect]
     Dosage: ORAL
     Route: 048

REACTIONS (1)
  - SUBARACHNOID HAEMORRHAGE [None]
